FAERS Safety Report 6902333-3 (Version None)
Quarter: 2010Q3

REPORT INFORMATION
  Report Type: 
  Country: None (occurrence: None)
  Receive Date: 20100803
  Receipt Date: 20080512
  Transmission Date: 20110219
  Serious: No
  Sender: FDA-Public Use
  Company Number: US-PFIZER INC-2008027623

PATIENT
  Sex: Male
  Weight: 86.2 kg

DRUGS (4)
  1. LYRICA [Suspect]
     Dates: start: 20071001
  2. LORTAB [Concomitant]
  3. XANAX [Concomitant]
  4. CORTISONE [Concomitant]

REACTIONS (1)
  - BARBITURATES POSITIVE [None]
